FAERS Safety Report 13251811 (Version 1)
Quarter: 2017Q1

REPORT INFORMATION
  Report Type: Spontaneous
  Country: US (occurrence: US)
  Receive Date: 20170220
  Receipt Date: 20170220
  Transmission Date: 20170428
  Serious: No
  Sender: FDA-Public Use
  Company Number: US-PFIZER INC-2017072628

PATIENT
  Sex: Female

DRUGS (2)
  1. LYRICA [Suspect]
     Active Substance: PREGABALIN
     Dosage: UNK 75 MG IN THE MORNING AND 50 MG AT NIGHT
  2. LYRICA [Suspect]
     Active Substance: PREGABALIN
     Dosage: 100 MG, DAILY 50 MG IN THE MORNING AND 50 AT NIGHT

REACTIONS (1)
  - Drug effect incomplete [Unknown]
